FAERS Safety Report 8210857-4 (Version None)
Quarter: 2012Q1

REPORT INFORMATION
  Report Type: 
  Country: None (occurrence: None)
  Receive Date: 20120315
  Receipt Date: 20120303
  Transmission Date: 20120608
  Serious: Yes (Other)
  Sender: FDA-Public Use
  Company Number: US-BRISTOL-MYERS SQUIBB COMPANY-16418758

PATIENT
  Age: 65 Year
  Sex: Female

DRUGS (1)
  1. ORENCIA [Suspect]
     Dosage: INFUSION

REACTIONS (3)
  - NASOPHARYNGITIS [None]
  - LUNG NEOPLASM [None]
  - DRUG INEFFECTIVE [None]
